FAERS Safety Report 5078269-2 (Version None)
Quarter: 2006Q3

REPORT INFORMATION
  Report Type: 
  Country: None (occurrence: None)
  Receive Date: 20060811
  Receipt Date: 20060731
  Transmission Date: 20061208
  Serious: Yes (Hospitalization)
  Sender: FDA-Public Use
  Company Number: AU-JNJFOC-20060802496

PATIENT
  Sex: Female

DRUGS (5)
  1. TRAMADOL HCL [Suspect]
     Indication: DRUG USE FOR UNKNOWN INDICATION
     Route: 065
  2. IMPLANON [Interacting]
     Indication: CONTRACEPTION
     Route: 058
  3. CARBAMAZEPINE [Interacting]
     Indication: DRUG USE FOR UNKNOWN INDICATION
     Route: 065
  4. HYOSCINE HBR HYT [Concomitant]
     Indication: MIGRAINE
     Route: 065
  5. METOCLOPRAMIDE [Concomitant]
     Indication: MIGRAINE
     Route: 065

REACTIONS (3)
  - CONVULSION [None]
  - DRUG EXPOSURE DURING PREGNANCY [None]
  - DRUG INTERACTION [None]
